FAERS Safety Report 25654586 (Version 1)
Quarter: 2025Q3

REPORT INFORMATION
  Report Type: Report from Study
  Country: US (occurrence: US)
  Receive Date: 20250807
  Receipt Date: 20250807
  Transmission Date: 20251020
  Serious: Yes (Other)
  Sender: AUROBINDO
  Company Number: US-AUROBINDO-AUR-APL-2024-062500

PATIENT

DRUGS (4)
  1. CARBOPLATIN [Suspect]
     Active Substance: CARBOPLATIN
     Indication: Thymic carcinoma
     Route: 065
  2. PACLITAXEL [Suspect]
     Active Substance: PACLITAXEL
     Indication: Thymic carcinoma
     Route: 042
  3. RAMUCIRUMAB [Suspect]
     Active Substance: RAMUCIRUMAB
     Indication: Thymic carcinoma
     Route: 042
  4. RAMUCIRUMAB [Suspect]
     Active Substance: RAMUCIRUMAB
     Route: 042

REACTIONS (3)
  - Fatigue [Unknown]
  - Dyspnoea [Unknown]
  - Ejection fraction decreased [Unknown]
